FAERS Safety Report 7633262-8 (Version None)
Quarter: 2011Q3

REPORT INFORMATION
  Report Type: 
  Country: None (occurrence: None)
  Receive Date: 20110725
  Receipt Date: 20110715
  Transmission Date: 20111222
  Serious: Yes (Hospitalization)
  Sender: FDA-Public Use
  Company Number: US-ROCHE-791028

PATIENT
  Sex: Female
  Weight: 86 kg

DRUGS (6)
  1. OXYCODONE HYDROCHLORIDE [Concomitant]
  2. DOXORUBICIN HYDROCHLORIDE [Suspect]
     Indication: BREAST CANCER
     Dosage: DAY 1 OF 28 DAY CYCLE
     Route: 065
     Dates: start: 20110707
  3. BEVACIZUMAB [Suspect]
     Indication: BREAST CANCER
     Dosage: DAY 1 AND DAY 15/ 28 DAY CYCLE
     Route: 065
     Dates: start: 20110707
  4. SYNTHROID [Concomitant]
     Dates: start: 20091201
  5. OXYCONTIN [Concomitant]
  6. CARBOPLATIN [Suspect]
     Indication: BREAST CANCER
     Dosage: AUC 3
     Route: 065
     Dates: start: 20110707

REACTIONS (1)
  - CHILLS [None]
